FAERS Safety Report 19354005 (Version 3)
Quarter: 2021Q2

REPORT INFORMATION
  Report Type: Spontaneous
  Country: FR (occurrence: FR)
  Receive Date: 20210531
  Receipt Date: 20210615
  Transmission Date: 20210717
  Serious: Yes (Death, Hospitalization, Other)
  Sender: FDA-Public Use
  Company Number: FR-IPSEN BIOPHARMACEUTICALS, INC.-2021-13315

PATIENT
  Age: 40 Year
  Sex: Female
  Weight: 82 kg

DRUGS (2)
  1. CREON [Concomitant]
     Active Substance: PANCRELIPASE AMYLASE\PANCRELIPASE LIPASE\PANCRELIPASE PROTEASE
     Indication: PRODUCT USED FOR UNKNOWN INDICATION
     Dosage: 25000 IU, 1 DF, BID
     Dates: start: 20200623
  2. ONIVYDE [Suspect]
     Active Substance: IRINOTECAN HYDROCHLORIDE
     Indication: PANCREATIC CARCINOMA
     Dosage: DOSE: UNKNOWN
     Route: 042
     Dates: start: 20210325, end: 20210408

REACTIONS (7)
  - Myocardial infarction [Fatal]
  - Renal infarct [Unknown]
  - Thrombophlebitis superficial [Unknown]
  - Pulmonary embolism [Unknown]
  - Arterial thrombosis [Unknown]
  - Splenic infarction [Unknown]
  - Cerebrovascular accident [Fatal]

NARRATIVE: CASE EVENT DATE: 20210421
